FAERS Safety Report 18920218 (Version 1)
Quarter: 2021Q1

REPORT INFORMATION
  Report Type: Report from Study
  Country: US (occurrence: US)
  Receive Date: 20210222
  Receipt Date: 20210222
  Transmission Date: 20210420
  Serious: Yes (Other)
  Sender: FDA-Public Use
  Company Number: NVSC2021US030453

PATIENT
  Sex: Female

DRUGS (1)
  1. GILENYA [Suspect]
     Active Substance: FINGOLIMOD HYDROCHLORIDE
     Indication: MULTIPLE SCLEROSIS
     Dosage: UNK
     Route: 048
     Dates: start: 2019

REACTIONS (5)
  - Multiple sclerosis [Unknown]
  - Lung disorder [Recovering/Resolving]
  - Fatigue [Recovering/Resolving]
  - COVID-19 [Recovering/Resolving]
  - Liver function test increased [Unknown]
